FAERS Safety Report 11632461 (Version 1)
Quarter: 2015Q4

REPORT INFORMATION
  Report Type: Spontaneous
  Country: US (occurrence: US)
  Receive Date: 20151015
  Receipt Date: 20151015
  Transmission Date: 20160304
  Serious: No
  Sender: FDA-Public Use
  Company Number: US-DRREDDYS-USA/USA/15/0049598

PATIENT
  Sex: Female

DRUGS (2)
  1. CLOCORTOLONE PIVALATE CREAM 0.1 PERCENT [Suspect]
     Active Substance: CLOCORTOLONE PIVALATE
     Indication: RASH
     Route: 065
     Dates: start: 201506
  2. CLARITIN [Concomitant]
     Active Substance: LORATADINE
     Indication: PRODUCT USED FOR UNKNOWN INDICATION
     Route: 065

REACTIONS (2)
  - Product quality issue [Unknown]
  - Rash [Unknown]
